FAERS Safety Report 9631731 (Version 5)
Quarter: 2014Q3

REPORT INFORMATION
  Report Type: Spontaneous
  Country: US (occurrence: US)
  Receive Date: 20131018
  Receipt Date: 20140915
  Transmission Date: 20150326
  Serious: Yes (Other)
  Sender: FDA-Public Use
  Company Number: US-BAYER-2013-126407

PATIENT
  Age: 29 Year
  Sex: Female
  Weight: 69 kg

DRUGS (3)
  1. MIRENA [Suspect]
     Active Substance: LEVONORGESTREL
     Indication: CONTRACEPTION
  2. FLAGYL [Concomitant]
     Active Substance: METRONIDAZOLE\METRONIDAZOLE HYDROCHLORIDE
     Dosage: UNK
  3. MIRENA [Suspect]
     Active Substance: LEVONORGESTREL
     Indication: CONTRACEPTION
     Dosage: 20 MCG/24HR, CONT
     Route: 015
     Dates: start: 20100729, end: 20130530

REACTIONS (10)
  - Ectopic pregnancy with contraceptive device [Recovered/Resolved]
  - Device difficult to use [None]
  - Pain [Recovered/Resolved]
  - Emotional distress [None]
  - Embedded device [None]
  - Abortion of ectopic pregnancy [Recovered/Resolved]
  - Device issue [None]
  - Drug ineffective [None]
  - Pelvic pain [Recovered/Resolved]
  - Injury [Recovered/Resolved]

NARRATIVE: CASE EVENT DATE: 201305
